FAERS Safety Report 8810377 (Version 2)
Quarter: 2012Q4

REPORT INFORMATION
  Report Type: 
  Country: US (occurrence: US)
  Receive Date: 20120926
  Receipt Date: 20121125
  Transmission Date: 20130627
  Serious: No
  Sender: FDA-Public Use
  Company Number: US-009507513-1209USA000778

PATIENT
  Sex: Male
  Weight: 81.63 kg

DRUGS (8)
  1. VICTRELIS [Suspect]
     Indication: HEPATITIS C
     Dosage: UNK, tid
     Dates: start: 20120814
  2. PEGASYS [Suspect]
  3. RIBAPAK [Suspect]
  4. ADVIL [Concomitant]
  5. AMARYL [Concomitant]
  6. TUMS [Concomitant]
  7. VALACYCLOVIR HYDROCHLORIDE [Concomitant]
  8. METFORMIN [Concomitant]

REACTIONS (14)
  - Pain [Unknown]
  - Dyspepsia [Unknown]
  - Headache [Unknown]
  - Dysgeusia [Unknown]
  - Fatigue [Unknown]
  - Dry mouth [Unknown]
  - Stomatitis [Unknown]
  - Nausea [Unknown]
  - Visual impairment [Unknown]
  - Aphthous stomatitis [Unknown]
  - Decreased appetite [Unknown]
  - Weight decreased [Unknown]
  - Ear pain [Unknown]
  - Oropharyngeal pain [Unknown]
